FAERS Safety Report 8335144-5 (Version None)
Quarter: 2012Q2

REPORT INFORMATION
  Report Type: 
  Country: None (occurrence: None)
  Receive Date: 20120503
  Receipt Date: 20120418
  Transmission Date: 20120825
  Serious: Yes (Hospitalization, Other)
  Sender: FDA-Public Use
  Company Number: IT-WATSON-2012-06864

PATIENT
  Age: 80 Year
  Sex: Female

DRUGS (1)
  1. TICLOPIDINE HCL [Suspect]
     Indication: CAROTID ARTERY STENOSIS
     Dosage: 250 MG, DAILY
     Route: 065

REACTIONS (1)
  - HYPERTENSIVE CRISIS [None]
